FAERS Safety Report 5161914-0 (Version None)
Quarter: 2006Q4

REPORT INFORMATION
  Report Type: 
  Country: None (occurrence: None)
  Receive Date: 20061130
  Receipt Date: 20061024
  Transmission Date: 20070319
  Serious: No
  Sender: FDA-Public Use
  Company Number: US-GLAXOSMITHKLINE-A0624742A

PATIENT
  Age: 50 Year
  Sex: Female

DRUGS (3)
  1. WELLBUTRIN XL [Suspect]
     Indication: DEPRESSION
     Dosage: 400MG UNKNOWN
     Route: 048
  2. LITHIUM CARBONATE [Concomitant]
  3. PROZAC [Concomitant]

REACTIONS (1)
  - MYOCLONUS [None]
